FAERS Safety Report 6388800-2 (Version None)
Quarter: 2009Q4

REPORT INFORMATION
  Report Type: 
  Country: None (occurrence: None)
  Receive Date: 20091001
  Receipt Date: 20090924
  Transmission Date: 20100525
  Serious: Yes (Other)
  Sender: FDA-Public Use
  Company Number: 388295

PATIENT
  Age: 5 Year
  Sex: Male

DRUGS (2)
  1. CYTARABINE [Suspect]
     Indication: BURKITT'S LYMPHOMA
     Dosage: 50 MG/M2, INTRAVENOUS DRIP
     Route: 041
  2. ETOPOSIDE [Suspect]
     Indication: BURKITT'S LYMPHOMA
     Dosage: 3 G/M2, INTRAVENOUS DRIP
     Route: 041

REACTIONS (1)
  - PALMAR-PLANTAR ERYTHRODYSAESTHESIA SYNDROME [None]
